FAERS Safety Report 7699581-4 (Version None)
Quarter: 2011Q3

REPORT INFORMATION
  Report Type: 
  Country: None (occurrence: None)
  Receive Date: 20110822
  Receipt Date: 20110810
  Transmission Date: 20111222
  Serious: Yes (Hospitalization)
  Sender: FDA-Public Use
  Company Number: US-BIOGENIDEC-2011BI030742

PATIENT
  Sex: Female

DRUGS (2)
  1. LORTAB [Concomitant]
     Indication: PAIN
  2. TYSABRI [Suspect]
     Indication: MULTIPLE SCLEROSIS
     Route: 042
     Dates: start: 20101130

REACTIONS (8)
  - INTERVERTEBRAL DISC PROTRUSION [None]
  - DRUG WITHDRAWAL HEADACHE [None]
  - BREAST COMPLICATION ASSOCIATED WITH DEVICE [None]
  - PAIN [None]
  - PAIN IN EXTREMITY [None]
  - CERVICAL POLYP [None]
  - PORPHYRIA NON-ACUTE [None]
  - FATIGUE [None]
